FAERS Safety Report 5840963-0 (Version None)
Quarter: 2008Q3

REPORT INFORMATION
  Report Type: 
  Country: None (occurrence: None)
  Receive Date: 20080811
  Receipt Date: 20080801
  Transmission Date: 20090109
  Serious: Yes (Other)
  Sender: FDA-Public Use
  Company Number: FR-PFIZER INC-2008064991

PATIENT
  Sex: Male

DRUGS (3)
  1. TAHOR [Suspect]
     Indication: INFARCTION
     Dosage: TEXT:40
  2. ASPIRIN [Suspect]
  3. PERINDOPRIL ERBUMINE [Suspect]

REACTIONS (10)
  - ALPHA 2 GLOBULIN INCREASED [None]
  - ARTHRITIS [None]
  - C-REACTIVE PROTEIN INCREASED [None]
  - GAIT DISTURBANCE [None]
  - MYALGIA [None]
  - NEUTROPHIL COUNT INCREASED [None]
  - PROSTATIC SPECIFIC ANTIGEN INCREASED [None]
  - RED BLOOD CELL SEDIMENTATION RATE INCREASED [None]
  - TENDON PAIN [None]
  - WHITE BLOOD CELL COUNT INCREASED [None]
